FAERS Safety Report 11861484 (Version 2)
Quarter: 2015Q4

REPORT INFORMATION
  Report Type: Spontaneous
  Country: SE (occurrence: SE)
  Receive Date: 20151222
  Receipt Date: 20151223
  Transmission Date: 20160305
  Serious: Yes (Hospitalization, Other)
  Sender: FDA-Public Use
  Company Number: PHHY2015SE072033

PATIENT
  Age: 38 Year
  Sex: Male

DRUGS (4)
  1. AZATHIOPRINE. [Suspect]
     Active Substance: AZATHIOPRINE
     Indication: DEMYELINATING POLYNEUROPATHY
     Route: 065
  2. CICLOSPORIN [Suspect]
     Active Substance: CYCLOSPORINE
     Indication: DEMYELINATING POLYNEUROPATHY
     Route: 065
  3. CYCLOPHOSPHAMIDE. [Suspect]
     Active Substance: CYCLOPHOSPHAMIDE
     Indication: DEMYELINATING POLYNEUROPATHY
     Route: 065
  4. IMMUNOGLOBULIN G HUMAN [Suspect]
     Active Substance: HUMAN IMMUNOGLOBULIN G
     Indication: DEMYELINATING POLYNEUROPATHY
     Route: 065

REACTIONS (5)
  - Drug resistance [Unknown]
  - Bacteraemia [Unknown]
  - Neutropenia [Recovered/Resolved]
  - Hypothyroidism [Unknown]
  - Cystitis haemorrhagic [Unknown]
